FAERS Safety Report 14773682 (Version 1)
Quarter: 2018Q2

REPORT INFORMATION
  Report Type: Spontaneous
  Country: FR (occurrence: FR)
  Receive Date: 20180418
  Receipt Date: 20180418
  Transmission Date: 20180711
  Serious: Yes (Death, Life-Threatening, Other)
  Sender: FDA-Public Use
  Company Number: PHHY2018FR064360

PATIENT
  Age: 77 Year
  Sex: Male

DRUGS (2)
  1. CEFAZOLIN [Interacting]
     Active Substance: CEFAZOLIN
     Indication: ENDOCARDITIS STAPHYLOCOCCAL
     Dosage: 6 G, QD
     Route: 042
  2. RIFAMPICIN [Suspect]
     Active Substance: RIFAMPIN
     Indication: ENDOCARDITIS STAPHYLOCOCCAL
     Dosage: 600 MG, Q12H
     Route: 065

REACTIONS (6)
  - Cardiogenic shock [Fatal]
  - Hypovitaminosis [Unknown]
  - Hypoprothrombinaemia [Unknown]
  - Drug interaction [Unknown]
  - Shock haemorrhagic [Fatal]
  - Pericardial haemorrhage [Unknown]
